FAERS Safety Report 5457983-0 (Version None)
Quarter: 2007Q3

REPORT INFORMATION
  Report Type: 
  Country: None (occurrence: None)
  Receive Date: 20070917
  Receipt Date: 20070830
  Transmission Date: 20080115
  Serious: Yes (Death)
  Sender: FDA-Public Use
  Company Number: 8026617

PATIENT
  Age: 36 Year
  Sex: Female
  Weight: 61 kg

DRUGS (8)
  1. KEPPRA [Suspect]
  2. DEPAKOTE [Suspect]
  3. NEURONTIN [Suspect]
  4. DILANTIN [Suspect]
  5. TEGRETOL [Suspect]
  6. PRIMIDONE [Suspect]
  7. KLONOPIN [Suspect]
  8. METOCLOPRAMIDE [Suspect]

REACTIONS (35)
  - ANAEMIA [None]
  - BLOOD CREATINE PHOSPHOKINASE INCREASED [None]
  - BODY TEMPERATURE INCREASED [None]
  - CALCINOSIS [None]
  - CATATONIA [None]
  - CHOLESTASIS [None]
  - CLOSTRIDIUM DIFFICILE COLITIS [None]
  - COMMUNICATION DISORDER [None]
  - CONVERSION DISORDER [None]
  - CRYSTAL URINE PRESENT [None]
  - DEHYDRATION [None]
  - HEPATIC CONGESTION [None]
  - HEPATIC ENZYME INCREASED [None]
  - HEPATIC NECROSIS [None]
  - HEPATIC STEATOSIS [None]
  - HYPERCHLORAEMIA [None]
  - HYPERHIDROSIS [None]
  - HYPERNATRAEMIA [None]
  - HYPERPYREXIA [None]
  - HYPERTENSION [None]
  - MENTAL STATUS CHANGES [None]
  - MUSCLE TWITCHING [None]
  - MUSCULOSKELETAL STIFFNESS [None]
  - MYOGLOBINURIA [None]
  - NEUROLEPTIC MALIGNANT SYNDROME [None]
  - ORAL INTAKE REDUCED [None]
  - PULMONARY OEDEMA [None]
  - RED BLOOD CELLS URINE POSITIVE [None]
  - RENAL FAILURE ACUTE [None]
  - RENAL TUBULAR NECROSIS [None]
  - RHABDOMYOLYSIS [None]
  - TACHYCARDIA [None]
  - TREMOR [None]
  - UROBILIN URINE PRESENT [None]
  - VITAMIN B12 INCREASED [None]
